FAERS Safety Report 15226326 (Version 3)
Quarter: 2018Q3

REPORT INFORMATION
  Report Type: Spontaneous
  Country: NZ (occurrence: NZ)
  Receive Date: 20180801
  Receipt Date: 20180822
  Transmission Date: 20181010
  Serious: Yes (Other)
  Sender: FDA-Public Use
  Company Number: NZ-MYLANLABS-2018M1058513

PATIENT
  Age: 49 Year
  Sex: Male

DRUGS (5)
  1. PARACETAMOL [Concomitant]
     Active Substance: ACETAMINOPHEN
     Indication: PRODUCT USED FOR UNKNOWN INDICATION
     Dosage: UNK (BEEN ON IT FOR OVER 8 YEARS AND STILL CONTINUING)
     Route: 048
  2. MOLAXOLE [Suspect]
     Active Substance: POLYETHYLENE GLYCOL 3350\POTASSIUM CHLORIDE\SODIUM BICARBONATE\SODIUM CHLORIDE
     Indication: CONSTIPATION
     Dosage: 1 DF, BID (MANE AND NOCTE)
     Route: 048
     Dates: start: 20180723
  3. TRAMADOL. [Concomitant]
     Active Substance: TRAMADOL
     Indication: PRODUCT USED FOR UNKNOWN INDICATION
     Dosage: UNK (BEEN ON IT FOR OVER 8 YEARS AND STILL CONTINUING)
     Route: 048
  4. OMEPRAZOLE. [Concomitant]
     Active Substance: OMEPRAZOLE
     Indication: PRODUCT USED FOR UNKNOWN INDICATION
     Dosage: UNK (BEEN ON IT FOR OVER 8 YEARS AND STILL CONTINUING)
     Route: 048
  5. BRUFEN                             /00109201/ [Concomitant]
     Active Substance: IBUPROFEN
     Indication: PRODUCT USED FOR UNKNOWN INDICATION
     Dosage: UNK (BEEN ON IT FOR OVER 8 YEARS AND STILL CONTINUING)
     Route: 048

REACTIONS (2)
  - Haematochezia [Recovered/Resolved]
  - Therapeutic response unexpected [Unknown]

NARRATIVE: CASE EVENT DATE: 20180726
